FAERS Safety Report 7646684-6 (Version None)
Quarter: 2011Q3

REPORT INFORMATION
  Report Type: 
  Country: None (occurrence: None)
  Receive Date: 20110729
  Receipt Date: 20110729
  Transmission Date: 20111222
  Serious: Yes (Life-Threatening, Disabling)
  Sender: FDA-Public Use
  Company Number: None

PATIENT
  Sex: Female
  Weight: 79.3795 kg

DRUGS (1)
  1. BENZTROPINE MESYLATE [Suspect]
     Dosage: MG2

REACTIONS (7)
  - DYSURIA [None]
  - MUSCULAR WEAKNESS [None]
  - ABDOMINAL DISCOMFORT [None]
  - DIZZINESS [None]
  - CONSTIPATION [None]
  - EYE SWELLING [None]
  - DRY MOUTH [None]
